FAERS Safety Report 10933071 (Version 1)
Quarter: 2015Q1

REPORT INFORMATION
  Report Type: Report from Study
  Country: BY (occurrence: BY)
  Receive Date: 20150320
  Receipt Date: 20150320
  Transmission Date: 20150721
  Serious: Yes (Hospitalization)
  Sender: FDA-Public Use
  Company Number: BY-BAXTER-2015BAX013576

PATIENT
  Age: 57 Year
  Sex: Female

DRUGS (3)
  1. CYCLOPHOSPHAMID TROCKENSUBSTANZ 1G BAXTER ONCOLOGY [Suspect]
     Active Substance: CYCLOPHOSPHAMIDE
     Indication: CHRONIC LYMPHOCYTIC LEUKAEMIA
     Dosage: 2ND-4TH DAYS, LAST DOSE PRIOR TO AE 15SEP2011
     Route: 042
     Dates: start: 20110426
  2. CLADRIBINE. [Suspect]
     Active Substance: CLADRIBINE
     Indication: CHRONIC LYMPHOCYTIC LEUKAEMIA
     Dosage: 2ND-4TH DAYS, LAST DOSE PRIOR TO AE 15SEP2011
     Route: 042
     Dates: start: 20110426
  3. RITUXIMAB [Suspect]
     Active Substance: RITUXIMAB
     Indication: CHRONIC LYMPHOCYTIC LEUKAEMIA
     Dosage: LAST DOSE PRIOR TO AE 07DEC2011
     Route: 042
     Dates: start: 20110425

REACTIONS (1)
  - Sympathetic posterior cervical syndrome [Recovered/Resolved]

NARRATIVE: CASE EVENT DATE: 20120208
